FAERS Safety Report 20210850 (Version 2)
Quarter: 2022Q1

REPORT INFORMATION
  Report Type: Report from Study
  Country: US (occurrence: None)
  Receive Date: 20211221
  Receipt Date: 20220328
  Transmission Date: 20220423
  Serious: Yes (Hospitalization, Other)
  Sender: FDA-Public Use
  Company Number: US-Merck Healthcare KGaA-9287329

PATIENT
  Age: 49 Year
  Sex: Female

DRUGS (1)
  1. REBIF [Suspect]
     Active Substance: INTERFERON BETA-1A
     Indication: Multiple sclerosis
     Route: 058
     Dates: start: 20130207

REACTIONS (11)
  - Diabetes mellitus [Unknown]
  - COVID-19 [Unknown]
  - Diarrhoea [Unknown]
  - Paranasal sinus hypersecretion [Unknown]
  - Weight decreased [Not Recovered/Not Resolved]
  - Alopecia [Not Recovered/Not Resolved]
  - Post-acute COVID-19 syndrome [Unknown]
  - Anxiety [Unknown]
  - Heart rate increased [Unknown]
  - Hypoaesthesia [Unknown]
  - Paraesthesia [Unknown]

NARRATIVE: CASE EVENT DATE: 20210901
